FAERS Safety Report 15158525 (Version 1)
Quarter: 2018Q3

REPORT INFORMATION
  Report Type: Spontaneous
  Country: CZ (occurrence: CZ)
  Receive Date: 20180718
  Receipt Date: 20180718
  Transmission Date: 20181010
  Serious: Yes (Life-Threatening, Hospitalization, Disabling)
  Sender: FDA-Public Use
  Company Number: CZ-TEVA-2018-CZ-928114

PATIENT
  Sex: Male
  Weight: 100 kg

DRUGS (4)
  1. MIRZATEN [Concomitant]
     Active Substance: MIRTAZAPINE
     Indication: OBSESSIVE-COMPULSIVE DISORDER
     Route: 048
     Dates: start: 201601, end: 201711
  2. OLWEXYA [Concomitant]
     Indication: OBSESSIVE-COMPULSIVE DISORDER
     Route: 048
     Dates: start: 201403, end: 201711
  3. TRAMADOL (RUZNE PRIPRAVKY) [Suspect]
     Active Substance: TRAMADOL
     Route: 048
     Dates: start: 2015
  4. MIRZATEN [Concomitant]
     Active Substance: MIRTAZAPINE
     Indication: INSOMNIA

REACTIONS (1)
  - Drug dependence [Recovered/Resolved with Sequelae]

NARRATIVE: CASE EVENT DATE: 2015
